FAERS Safety Report 4421077-3 (Version None)
Quarter: 2004Q3

REPORT INFORMATION
  Report Type: 
  Country: None (occurrence: None)
  Receive Date: 20040707
  Receipt Date: 20040415
  Transmission Date: 20050211
  Serious: Yes (Other)
  Sender: FDA-Public Use
  Company Number: 364807

PATIENT
  Age: 40 Year
  Sex: Male
  Weight: 86.2 kg

DRUGS (8)
  1. FUZEON [Suspect]
     Indication: HIV INFECTION
     Dosage: 90 MG 2 PER DAY, SUBCUTANEOUS
     Route: 058
     Dates: start: 20040101
  2. LITHIUM (LITHIUM NOS) [Suspect]
     Indication: BIPOLAR DISORDER
     Dosage: 900 MG DAILY, ORAL
     Route: 048
     Dates: start: 19920615
  3. VIREAD [Concomitant]
  4. UNKNKOWN MEDICATIONS (GENERIC COMPONENT(S) [Concomitant]
  5. NORVIR [Concomitant]
  6. DEPAKOTE [Concomitant]
  7. REYATAZ [Concomitant]
  8. BACTRIM [Concomitant]

REACTIONS (7)
  - HYPOAESTHESIA [None]
  - INJECTION SITE ERYTHEMA [None]
  - INJECTION SITE REACTION [None]
  - MANIA [None]
  - MEMORY IMPAIRMENT [None]
  - NEUROPATHY PERIPHERAL [None]
  - POST PROCEDURAL COMPLICATION [None]
